FAERS Safety Report 6384647-1 (Version None)
Quarter: 2009Q4

REPORT INFORMATION
  Report Type: 
  Country: None (occurrence: None)
  Receive Date: 20091001
  Receipt Date: 20090922
  Transmission Date: 20100525
  Serious: Yes (Hospitalization, Other)
  Sender: FDA-Public Use
  Company Number: PHEH2008US07465

PATIENT
  Sex: Male

DRUGS (12)
  1. ZOMETA [Suspect]
     Dosage: 4 MG EVERY 4 WEEKS
     Dates: start: 20020716
  2. IBUPROFEN [Concomitant]
     Dosage: 800 MG, TID
  3. HYZAAR [Concomitant]
     Dosage: 50/12.5MG 1/2 TABLET DAILY
  4. NIACIN [Concomitant]
     Dosage: 1000 MG EVERY HS
  5. EFFEXOR [Concomitant]
     Dosage: 225MG DAILY
  6. PROSCAR [Concomitant]
     Dosage: 10MG
  7. ASPIRIN [Concomitant]
     Dosage: 5 GR QD
  8. AMBIEN [Concomitant]
     Dosage: OCCASIONALLY
  9. CASODEX [Concomitant]
     Indication: PROSTATE CANCER
     Dosage: 50 MG, QD
     Dates: end: 20030415
  10. LUPRON [Concomitant]
     Indication: PROSTATE CANCER
     Dosage: 0.25 MG, Q3MO
     Route: 030
  11. RADIATION THERAPY [Concomitant]
     Dosage: 4 MG, EVERY 4 WEEKS
     Route: 042
     Dates: start: 20021001
  12. LIPITOR [Concomitant]
     Dosage: UNK
     Dates: end: 20040401

REACTIONS (37)
  - ANHEDONIA [None]
  - ANXIETY [None]
  - ARTHRALGIA [None]
  - ATELECTASIS [None]
  - BACK PAIN [None]
  - BLADDER OPERATION [None]
  - BONE CYST [None]
  - CARTILAGE INJURY [None]
  - CHEST PAIN [None]
  - CONFUSIONAL STATE [None]
  - DEPRESSION [None]
  - DIARRHOEA [None]
  - ENTERITIS [None]
  - FATIGUE [None]
  - GASTROENTERITIS RADIATION [None]
  - HAEMOGLOBIN DECREASED [None]
  - HYPERLIPIDAEMIA [None]
  - HYPOAESTHESIA [None]
  - HYPOKALAEMIA [None]
  - INJURY [None]
  - LIVER FUNCTION TEST ABNORMAL [None]
  - LUNG INFECTION [None]
  - MALAISE [None]
  - METASTASES TO BONE [None]
  - METASTASES TO LYMPH NODES [None]
  - NECK PAIN [None]
  - OSTEONECROSIS [None]
  - OSTEOPOROSIS [None]
  - PAIN [None]
  - PAIN IN EXTREMITY [None]
  - RETROPERITONEAL LYMPHADENOPATHY [None]
  - SLEEP DISORDER [None]
  - SLEEP TERROR [None]
  - SOMNAMBULISM [None]
  - SPINAL OSTEOARTHRITIS [None]
  - THROMBOCYTOPENIA [None]
  - TOOTH EXTRACTION [None]
